APPROVED DRUG PRODUCT: BANZEL
Active Ingredient: RUFINAMIDE
Strength: 40MG/ML
Dosage Form/Route: SUSPENSION;ORAL
Application: N201367 | Product #001 | TE Code: AB
Applicant: EISAI INC
Approved: Mar 3, 2011 | RLD: Yes | RS: Yes | Type: RX